FAERS Safety Report 5389618-X (Version None)
Quarter: 2007Q3

REPORT INFORMATION
  Report Type: 
  Country: None (occurrence: None)
  Receive Date: 20070713
  Receipt Date: 20070705
  Transmission Date: 20080115
  Serious: Yes (Hospitalization, Other)
  Sender: FDA-Public Use
  Company Number: 2007BI014229

PATIENT
  Sex: Female
  Weight: 70 kg

DRUGS (4)
  1. AVONEX [Suspect]
     Indication: MULTIPLE SCLEROSIS
     Dosage: 30 UG; QW; IM
     Route: 030
     Dates: start: 20000801
  2. TIZANIDINE HCL [Concomitant]
  3. OXYBUTIN [Concomitant]
  4. HORMONE REPLACEMENT THERAPY [Concomitant]

REACTIONS (4)
  - BLADDER DISORDER [None]
  - FALL [None]
  - HORMONE REPLACEMENT THERAPY [None]
  - KNEE OPERATION [None]
